FAERS Safety Report 25085284 (Version 1)
Quarter: 2025Q1

REPORT INFORMATION
  Report Type: Spontaneous
  Country: US (occurrence: None)
  Receive Date: 20250314
  Receipt Date: 20250314
  Transmission Date: 20250409
  Serious: Yes (Hospitalization)
  Sender: FDA-CTU
  Company Number: None

PATIENT
  Age: 4 Week
  Sex: Male
  Weight: 3 kg

DRUGS (2)
  1. NIRSEVIMAB [Suspect]
     Active Substance: NIRSEVIMAB
     Indication: Antiviral prophylaxis
     Dates: start: 20250310, end: 20250310
  2. PROPRANOLOL [Concomitant]
     Active Substance: PROPRANOLOL HYDROCHLORIDE
     Dates: start: 20250217, end: 20250310

REACTIONS (4)
  - Lethargy [None]
  - Bradycardia [None]
  - Hypothermia [None]
  - Haematochezia [None]

NARRATIVE: CASE EVENT DATE: 20250310
